FAERS Safety Report 10789157 (Version 3)
Quarter: 2016Q2

REPORT INFORMATION
  Report Type: Spontaneous
  Country: US (occurrence: US)
  Receive Date: 20150212
  Receipt Date: 20160518
  Transmission Date: 20160815
  Serious: No
  Sender: FDA-Public Use
  Company Number: US-BAYER-2015-021299

PATIENT
  Age: 30 Year
  Sex: Female

DRUGS (2)
  1. GADAVIST [Suspect]
     Active Substance: GADOBUTROL
     Indication: NUCLEAR MAGNETIC RESONANCE IMAGING
     Dosage: 8.8 ML, ONCE
     Route: 042
     Dates: start: 20150206, end: 20150206
  2. GADAVIST [Suspect]
     Active Substance: GADOBUTROL
     Indication: NUCLEAR MAGNETIC RESONANCE IMAGING
     Dosage: 7.5 ML, ONCE
     Route: 042
     Dates: start: 20160512, end: 20160512

REACTIONS (6)
  - Vomiting [Recovered/Resolved]
  - Urticaria [Recovered/Resolved]
  - Throat tightness [None]
  - Rash [None]
  - Urticaria [None]
  - Nausea [Recovered/Resolved]

NARRATIVE: CASE EVENT DATE: 20150206
